FAERS Safety Report 15016637 (Version 1)
Quarter: 2018Q2

REPORT INFORMATION
  Report Type: Spontaneous
  Country: SE (occurrence: SE)
  Receive Date: 20180615
  Receipt Date: 20180615
  Transmission Date: 20180711
  Serious: Yes (Hospitalization)
  Sender: FDA-Public Use
  Company Number: SE-009507513-1806SWE001861

PATIENT
  Age: 81 Year
  Sex: Female

DRUGS (4)
  1. OXASCAND [Concomitant]
     Active Substance: OXAZEPAM
  2. TARGINIQ ER [Concomitant]
     Active Substance: NALOXONE HYDROCHLORIDE\OXYCODONE HYDROCHLORIDE
  3. LOSARTAN POTASSIUM. [Suspect]
     Active Substance: LOSARTAN POTASSIUM
     Dates: start: 20180429, end: 20180429
  4. TRADOLAN [Suspect]
     Active Substance: TRAMADOL
     Dates: start: 20180429, end: 20180429

REACTIONS (3)
  - Suicidal ideation [Unknown]
  - Toxicity to various agents [Recovered/Resolved]
  - Depressed level of consciousness [Recovered/Resolved]

NARRATIVE: CASE EVENT DATE: 20180429
